FAERS Safety Report 6362132-0 (Version None)
Quarter: 2009Q4

REPORT INFORMATION
  Report Type: 
  Country: None (occurrence: None)
  Receive Date: 20090918
  Receipt Date: 20090914
  Transmission Date: 20100525
  Serious: Yes (Other)
  Sender: FDA-Public Use
  Company Number: US-JNJCH-2009024768

PATIENT
  Age: 10 Year
  Sex: Male
  Weight: 34 kg

DRUGS (1)
  1. CHILDREN'S ZYRTEC ALLERGY [Suspect]
     Indication: HYPERSENSITIVITY
     Dosage: TEXT:ONE CHEWABLE ONCE A DAY
     Route: 048

REACTIONS (4)
  - LIP SWELLING [None]
  - PENILE SWELLING [None]
  - RASH GENERALISED [None]
  - URTICARIA [None]
